FAERS Safety Report 12799515 (Version 1)
Quarter: 2016Q3

REPORT INFORMATION
  Report Type: Spontaneous
  Country: US (occurrence: US)
  Receive Date: 20160930
  Receipt Date: 20160930
  Transmission Date: 20161109
  Serious: No
  Sender: FDA-Public Use
  Company Number: US-PARI RESPIRATORY EQUIPMENT, INC.-2016PAR00016

PATIENT
  Sex: Female

DRUGS (2)
  1. KITABIS PAK [Suspect]
     Active Substance: TOBRAMYCIN
     Indication: CYSTIC FIBROSIS
     Dosage: 300 MG, 2X/DAY
     Dates: start: 20160224
  2. KITABIS PAK [Suspect]
     Active Substance: TOBRAMYCIN
     Dosage: 300 MG, 2X/DAY

REACTIONS (2)
  - Drug administration error [Unknown]
  - Memory impairment [Unknown]

NARRATIVE: CASE EVENT DATE: 2016
